FAERS Safety Report 8065256-5 (Version None)
Quarter: 2012Q1

REPORT INFORMATION
  Report Type: 
  Country: None (occurrence: None)
  Receive Date: 20120124
  Receipt Date: 20120116
  Transmission Date: 20120608
  Serious: Yes (Hospitalization)
  Sender: FDA-Public Use
  Company Number: US-US-EMD SERONO, INC.-7107547

PATIENT
  Sex: Female

DRUGS (1)
  1. REBIF [Suspect]
     Indication: MULTIPLE SCLEROSIS
     Route: 058
     Dates: start: 20110812, end: 20120106

REACTIONS (4)
  - BRONCHITIS [None]
  - FATIGUE [None]
  - WEIGHT DECREASED [None]
  - COLITIS ISCHAEMIC [None]
